FAERS Safety Report 12304359 (Version 1)
Quarter: 2016Q2

REPORT INFORMATION
  Report Type: Spontaneous
  Country: PT (occurrence: PT)
  Receive Date: 20160426
  Receipt Date: 20160426
  Transmission Date: 20160815
  Serious: Yes (Disabling)
  Sender: FDA-Public Use
  Company Number: PT-009507513-1604PRT013951

PATIENT
  Age: 50 Year
  Sex: Female

DRUGS (1)
  1. ORVATEZ [Suspect]
     Active Substance: ATORVASTATIN CALCIUM\EZETIMIBE
     Indication: DYSLIPIDAEMIA
     Dosage: 1 DF, 1 DOSAGE 48 HOURS
     Route: 048
     Dates: start: 201603

REACTIONS (2)
  - Swelling face [Not Recovered/Not Resolved]
  - Weight increased [Not Recovered/Not Resolved]

NARRATIVE: CASE EVENT DATE: 201603
